FAERS Safety Report 7343250-7 (Version None)
Quarter: 2011Q1

REPORT INFORMATION
  Report Type: 
  Country: None (occurrence: None)
  Receive Date: 20110310
  Receipt Date: 20110301
  Transmission Date: 20110831
  Serious: Yes (Other)
  Sender: FDA-Public Use
  Company Number: GB-JNJFOC-20110302348

PATIENT
  Sex: Female

DRUGS (4)
  1. NICORETTE INVISI PATCH 25 MG [Suspect]
     Route: 062
  2. NICORETTE INVISI PATCH 25 MG [Suspect]
     Indication: PRODUCT USED FOR UNKNOWN INDICATION
     Route: 062
  3. NICORETTE INVISI PATCH 15 MG [Suspect]
     Route: 062
  4. NICORETTE INVISI PATCH 15 MG [Suspect]
     Indication: PRODUCT USED FOR UNKNOWN INDICATION
     Route: 062

REACTIONS (2)
  - SYNCOPE [None]
  - APPLICATION SITE VESICLES [None]
